FAERS Safety Report 20661048 (Version 1)
Quarter: 2022Q1

REPORT INFORMATION
  Report Type: Spontaneous
  Country: FR (occurrence: FR)
  Receive Date: 20220331
  Receipt Date: 20220331
  Transmission Date: 20220424
  Serious: Yes (Other)
  Sender: FDA-Public Use
  Company Number: FR-CELGENE-FRA-20220207785

PATIENT
  Age: 92 Year
  Sex: Male
  Weight: 80 kg

DRUGS (2)
  1. LENALIDOMIDE [Suspect]
     Active Substance: LENALIDOMIDE
     Indication: Plasma cell myeloma
     Dosage: 15 MILLIGRAM
     Route: 048
     Dates: start: 20160804
  2. DEXAMETHASONE [Concomitant]
     Active Substance: DEXAMETHASONE
     Indication: Product used for unknown indication
     Dosage: 2.8571 MILLIGRAM
     Route: 065
     Dates: start: 20160804

REACTIONS (3)
  - Bowen^s disease [Recovered/Resolved]
  - Bowen^s disease [Recovered/Resolved]
  - Bowen^s disease [Recovered/Resolved]
